FAERS Safety Report 4354851-2 (Version None)
Quarter: 2004Q2

REPORT INFORMATION
  Report Type: 
  Country: None (occurrence: None)
  Receive Date: 20040507
  Receipt Date: 20040504
  Transmission Date: 20050107
  Serious: Yes (Life-Threatening)
  Sender: FDA-Public Use
  Company Number: FR-GLAXOSMITHKLINE-B0331714A

PATIENT
  Age: 54 Year
  Sex: Male
  Weight: 80 kg

DRUGS (5)
  1. CLAMOXYL [Suspect]
     Indication: INFLUENZA LIKE ILLNESS
     Dosage: 500MG SINGLE DOSE
     Route: 048
     Dates: start: 20040331, end: 20040331
  2. HUMEX [Suspect]
     Route: 055
     Dates: start: 20040331, end: 20040331
  3. ADRENALIN IN OIL INJ [Suspect]
     Dosage: .1MG THREE TIMES PER DAY
     Route: 042
     Dates: start: 20040331, end: 20040331
  4. SOLU-MEDROL [Suspect]
     Dosage: 120MG PER DAY
     Route: 042
     Dates: start: 20040331, end: 20040331
  5. CARTEOLOL HCL [Concomitant]
     Indication: GLAUCOMA
     Dosage: 1DROP TWICE PER DAY
     Route: 047
     Dates: end: 20040331

REACTIONS (13)
  - ABDOMINAL PAIN [None]
  - ANAPHYLACTIC SHOCK [None]
  - BLOOD PRESSURE IMMEASURABLE [None]
  - CHEST PAIN [None]
  - DEPRESSED LEVEL OF CONSCIOUSNESS [None]
  - DERMATITIS EXFOLIATIVE [None]
  - HYPERHIDROSIS [None]
  - MALAISE [None]
  - MEDICATION ERROR [None]
  - MYOCARDIAL INFARCTION [None]
  - NAUSEA [None]
  - OEDEMA [None]
  - URTICARIA [None]
